FAERS Safety Report 7967620-9 (Version None)
Quarter: 2011Q4

REPORT INFORMATION
  Report Type: 
  Country: None (occurrence: None)
  Receive Date: 20111209
  Receipt Date: 20111205
  Transmission Date: 20120403
  Serious: Yes (Hospitalization, Congenital Anomaly)
  Sender: FDA-Public Use
  Company Number: DE-JNJFOC-20110511528

PATIENT
  Sex: Male
  Weight: 2 kg

DRUGS (6)
  1. FOLIC ACID [Concomitant]
     Dosage: 0-33.5 WEEKS
  2. VOLTAREN [Suspect]
     Indication: FOETAL EXPOSURE DURING PREGNANCY
     Dosage: GESTATION WEEKS 0-27
     Route: 015
  3. HUMIRA [Concomitant]
     Indication: FOETAL EXPOSURE DURING PREGNANCY
     Dosage: STOPPED 3 MONTHS PRIOR TO PREGNANCY
     Route: 015
  4. ACETAMINOPHEN [Concomitant]
     Indication: FOETAL EXPOSURE DURING PREGNANCY
     Dosage: 1500-3000 MG/DAY, GESTATIONAL WEEKS 27-35
     Route: 015
  5. PREDNISOLONE [Suspect]
     Indication: FOETAL EXPOSURE DURING PREGNANCY
     Dosage: GESTATIONAK WEEKS (GW) 1-35: VARIABLE DOSE, MAX 30 MG/DAY
     Route: 015
  6. IBUPROFEN [Suspect]
     Indication: FOETAL EXPOSURE DURING PREGNANCY
     Dosage: GESTATIONAL WEEKS 16-22
     Route: 015

REACTIONS (5)
  - SMALL FOR DATES BABY [None]
  - HYPERBILIRUBINAEMIA NEONATAL [None]
  - CRYPTORCHISM [None]
  - DUCTUS ARTERIOSUS STENOSIS FOETAL [None]
  - PREMATURE BABY [None]
